FAERS Safety Report 4408272-4 (Version None)
Quarter: 2004Q3

REPORT INFORMATION
  Report Type: 
  Country: None (occurrence: None)
  Receive Date: 20040722
  Receipt Date: 20040709
  Transmission Date: 20050211
  Serious: No
  Sender: FDA-Public Use
  Company Number: B0338812A

PATIENT
  Age: 69 Year
  Sex: Female

DRUGS (2)
  1. BECONASE [Suspect]
     Indication: BRONCHITIS
     Dosage: PER DAY/INHALED
     Route: 055
  2. TERBUTALINE [Concomitant]

REACTIONS (4)
  - FEMORAL NECK FRACTURE [None]
  - JOINT RANGE OF MOTION DECREASED [None]
  - OSTEONECROSIS [None]
  - THROMBOSIS [None]
